FAERS Safety Report 8563300-X (Version None)
Quarter: 2012Q3

REPORT INFORMATION
  Report Type: 
  Country: None (occurrence: None)
  Receive Date: 20120802
  Receipt Date: 20120727
  Transmission Date: 20120928
  Serious: No
  Sender: FDA-Public Use
  Company Number: US-AMGEN-USASP2012047199

PATIENT
  Age: 17 Year
  Sex: Female

DRUGS (1)
  1. ENBREL [Suspect]
     Indication: ANKYLOSING SPONDYLITIS
     Dosage: 50 MG, QWK
     Dates: start: 20110501

REACTIONS (7)
  - COUGH [None]
  - PNEUMONIA [None]
  - NASOPHARYNGITIS [None]
  - THERAPEUTIC RESPONSE DECREASED [None]
  - ARTHRALGIA [None]
  - ANKYLOSING SPONDYLITIS [None]
  - IRITIS [None]
